FAERS Safety Report 24330384 (Version 3)
Quarter: 2025Q3

REPORT INFORMATION
  Report Type: Report from Study
  Country: US (occurrence: US)
  Receive Date: 20240918
  Receipt Date: 20250809
  Transmission Date: 20251021
  Serious: Yes (Other)
  Sender: ALEXION PHARMACEUTICALS
  Company Number: 2024A206533

PATIENT
  Sex: Male

DRUGS (1)
  1. BREZTRI [Suspect]
     Active Substance: BUDESONIDE\FORMOTEROL\GLYCOPYRROLATE

REACTIONS (6)
  - Oxygen saturation decreased [Unknown]
  - Anxiety [Unknown]
  - Dyspnoea [Unknown]
  - Nasal disorder [Unknown]
  - Sinusitis [Unknown]
  - Panic attack [Unknown]
